FAERS Safety Report 11919902 (Version 1)
Quarter: 2016Q1

REPORT INFORMATION
  Report Type: Spontaneous
  Country: CA (occurrence: CA)
  Receive Date: 20160115
  Receipt Date: 20160115
  Transmission Date: 20160526
  Serious: Yes (Other)
  Sender: FDA-Public Use
  Company Number: CA-TEVA-625275ACC

PATIENT
  Sex: Female

DRUGS (1)
  1. AMOXICILLIN/CLAVULANATE [Suspect]
     Active Substance: AMOXICILLIN\CLAVULANATE POTASSIUM
     Indication: CELLULITIS
     Dosage: 3 DOSAGE FORMS DAILY;
     Route: 065

REACTIONS (6)
  - Lip dry [Unknown]
  - Oral herpes [Unknown]
  - Lip swelling [Unknown]
  - Oral discomfort [Unknown]
  - Arrhythmia [Unknown]
  - Eczema [Unknown]
